FAERS Safety Report 25793069 (Version 1)
Quarter: 2025Q3

REPORT INFORMATION
  Report Type: Spontaneous
  Country: US (occurrence: US)
  Receive Date: 20250911
  Receipt Date: 20250911
  Transmission Date: 20251021
  Serious: Yes (Death, Hospitalization, Other)
  Sender: INSUD PHARMA
  Company Number: US-INSUD PHARMA-2509US07391

PATIENT

DRUGS (2)
  1. NUVESSA [Suspect]
     Active Substance: METRONIDAZOLE
     Indication: Diarrhoea haemorrhagic
     Route: 065
  2. CIPROFLOXACIN [Suspect]
     Active Substance: CIPROFLOXACIN
     Indication: Diarrhoea haemorrhagic
     Route: 065

REACTIONS (5)
  - Gastroenteritis staphylococcal [Unknown]
  - Diarrhoea haemorrhagic [Unknown]
  - Respiratory failure [Fatal]
  - Pulmonary oedema [Unknown]
  - Tachypnoea [Unknown]
